FAERS Safety Report 7986929-6 (Version None)
Quarter: 2011Q4

REPORT INFORMATION
  Report Type: 
  Country: None (occurrence: None)
  Receive Date: 20111216
  Receipt Date: 20110908
  Transmission Date: 20120403
  Serious: No
  Sender: FDA-Public Use
  Company Number: US-BRISTOL-MYERS SQUIBB COMPANY-16042921

PATIENT
  Sex: Male

DRUGS (6)
  1. ABILIFY [Suspect]
     Dosage: ALSO TAKEN AS CONMED
  2. PERCOCET [Concomitant]
  3. FOLIC ACID [Concomitant]
  4. ZYPREXA [Concomitant]
  5. SERTRALINE HYDROCHLORIDE [Concomitant]
  6. COZAAR [Concomitant]

REACTIONS (1)
  - DIZZINESS [None]
